FAERS Safety Report 23176424 (Version 1)
Quarter: 2023Q4

REPORT INFORMATION
  Report Type: Report from Study
  Country: ES (occurrence: ES)
  Receive Date: 20231113
  Receipt Date: 20231113
  Transmission Date: 20240110
  Serious: Yes (Death)
  Sender: FDA-Public Use
  Company Number: ES-PFIZER INC-202300361632

PATIENT

DRUGS (4)
  1. CYTARABINE [Suspect]
     Active Substance: CYTARABINE
     Indication: Acute myeloid leukaemia
     Dosage: 100-200 MG/M2/DAY ON DAYS 1-7 OR 1-5 OF A 28-DAY CYCLE
  2. CYTARABINE [Suspect]
     Active Substance: CYTARABINE
     Dosage: 1-3 G/M2, 2 TIMES A DAY, ON DAYS 1, 3, AND 5, FOR UP TO 4 CYCLES OF CONSOLIDATION CT
  3. IDARUBICIN HYDROCHLORIDE [Suspect]
     Active Substance: IDARUBICIN HYDROCHLORIDE
     Indication: Acute myeloid leukaemia
     Dosage: 12 MG/M2 ON DAYS 1-3 OR 1-2 OF A 28 DAY CYCLE
  4. MIDOSTAURIN [Suspect]
     Active Substance: MIDOSTAURIN
     Indication: Acute myeloid leukaemia
     Dosage: 50 MG (2X25 MG 2 CAPSULE) ON DAYS 8-28
     Route: 048

REACTIONS (1)
  - Cardiac arrest [Fatal]
